FAERS Safety Report 9153738 (Version 1)
Quarter: 2013Q1

REPORT INFORMATION
  Report Type: Spontaneous
  Country: US (occurrence: US)
  Receive Date: 20130214
  Receipt Date: 20130214
  Transmission Date: 20140127
  Serious: Yes (Life-Threatening, Hospitalization, Other)
  Sender: FDA-Public Use
  Company Number: US-RB-049779-13

PATIENT
  Age: 29 Year
  Sex: Male

DRUGS (2)
  1. SUBOXONE TABLET [Suspect]
     Indication: DRUG DEPENDENCE
     Route: 060
     Dates: start: 2006, end: 201102
  2. SUBOXONE FILM [Suspect]
     Indication: PRODUCT USED FOR UNKNOWN INDICATION
     Dosage: SUBOXONE FILM; DOSING DETAILS NOT PROVIDED
     Route: 065

REACTIONS (11)
  - Road traffic accident [Recovered/Resolved]
  - Skull fracture [Recovered/Resolved]
  - Upper limb fracture [Recovered/Resolved]
  - Loss of consciousness [Recovered/Resolved]
  - Sternal fracture [Recovered/Resolved]
  - Traumatic liver injury [Recovered/Resolved]
  - Rotator cuff syndrome [Recovered/Resolved]
  - Musculoskeletal pain [Not Recovered/Not Resolved]
  - Wrong technique in drug usage process [Recovered/Resolved]
  - Underdose [Recovered/Resolved]
  - Haemorrhage [Recovered/Resolved]
